FAERS Safety Report 19271897 (Version 2)
Quarter: 2024Q1

REPORT INFORMATION
  Report Type: Spontaneous
  Country: US (occurrence: US)
  Receive Date: 20210519
  Receipt Date: 20240201
  Transmission Date: 20240410
  Serious: No
  Sender: FDA-Public Use
  Company Number: US-NOVEN PHARMACEUTICALS, INC.-2020US007840

PATIENT
  Sex: Female

DRUGS (1)
  1. DAYTRANA [Interacting]
     Active Substance: METHYLPHENIDATE
     Indication: Product used for unknown indication
     Dosage: 20 MG/9 HOURS
     Route: 062

REACTIONS (5)
  - Incorrect dose administered by product [Not Recovered/Not Resolved]
  - Product administration error [Not Recovered/Not Resolved]
  - Device adhesion issue [Not Recovered/Not Resolved]
  - Device physical property issue [Not Recovered/Not Resolved]
  - No adverse event [Unknown]
